FAERS Safety Report 11105966 (Version 1)
Quarter: 2015Q2

REPORT INFORMATION
  Report Type: Spontaneous
  Country: US (occurrence: None)
  Receive Date: 20150511
  Receipt Date: 20150511
  Transmission Date: 20150821
  Serious: Yes (Hospitalization)
  Sender: FDA-Public Use
  Company Number: None

PATIENT
  Age: 53 Year
  Sex: Female
  Weight: 95.26 kg

DRUGS (2)
  1. LEXISCAN [Suspect]
     Active Substance: REGADENOSON
     Route: 042
  2. LEXISCAN [Concomitant]
     Active Substance: REGADENOSON

REACTIONS (2)
  - Seizure [None]
  - Unresponsive to stimuli [None]

NARRATIVE: CASE EVENT DATE: 20150506
